FAERS Safety Report 20136482 (Version 1)
Quarter: 2021Q4

REPORT INFORMATION
  Report Type: Report from Study
  Country: ES (occurrence: ES)
  Receive Date: 20211201
  Receipt Date: 20211201
  Transmission Date: 20220303
  Serious: Yes (Hospitalization, Other)
  Sender: FDA-Public Use
  Company Number: ES-TAKEDA-2021TUS073968

PATIENT
  Age: 2 Year
  Sex: Male

DRUGS (12)
  1. TEDUGLUTIDE [Suspect]
     Active Substance: TEDUGLUTIDE
     Indication: Product used for unknown indication
     Dosage: 04000 MILLIGRAM, 1/WEEK
     Route: 065
     Dates: start: 20201106, end: 20210405
  2. TEDUGLUTIDE [Suspect]
     Active Substance: TEDUGLUTIDE
     Indication: Product used for unknown indication
     Dosage: 04000 MILLIGRAM, 1/WEEK
     Route: 065
     Dates: start: 20201106, end: 20210405
  3. TEDUGLUTIDE [Suspect]
     Active Substance: TEDUGLUTIDE
     Indication: Product used for unknown indication
     Dosage: 04000 MILLIGRAM, 1/WEEK
     Route: 065
     Dates: start: 20201106, end: 20210405
  4. TEDUGLUTIDE [Suspect]
     Active Substance: TEDUGLUTIDE
     Indication: Product used for unknown indication
     Dosage: 04000 MILLIGRAM, 1/WEEK
     Route: 065
     Dates: start: 20201106, end: 20210405
  5. TEDUGLUTIDE [Suspect]
     Active Substance: TEDUGLUTIDE
     Dosage: 0.400 MILLIGRAM
     Route: 065
     Dates: start: 20210405, end: 20210505
  6. TEDUGLUTIDE [Suspect]
     Active Substance: TEDUGLUTIDE
     Dosage: 0.400 MILLIGRAM
     Route: 065
     Dates: start: 20210405, end: 20210505
  7. TEDUGLUTIDE [Suspect]
     Active Substance: TEDUGLUTIDE
     Dosage: 0.400 MILLIGRAM
     Route: 065
     Dates: start: 20210405, end: 20210505
  8. TEDUGLUTIDE [Suspect]
     Active Substance: TEDUGLUTIDE
     Dosage: 0.400 MILLIGRAM
     Route: 065
     Dates: start: 20210405, end: 20210505
  9. SULFAMETHOXAZOLE\TRIMETHOPRIM [Concomitant]
     Active Substance: SULFAMETHOXAZOLE\TRIMETHOPRIM
     Dosage: 3 MILLILITER, BID
     Route: 048
     Dates: start: 20210702
  10. BEMIPARIN SODIUM [Concomitant]
     Active Substance: BEMIPARIN SODIUM
     Dosage: 850 INTERNATIONAL UNIT, QD
     Route: 058
     Dates: start: 20210702
  11. PREDNISOLONE STEAGLATE [Concomitant]
     Active Substance: PREDNISOLONE STEAGLATE
     Dosage: 0.70 MILLILITER, QD
     Route: 048
     Dates: start: 20210715
  12. PREDNISOLONE STEAGLATE [Concomitant]
     Active Substance: PREDNISOLONE STEAGLATE
     Dosage: 1.50 UNK
     Route: 048
     Dates: start: 20210702, end: 20210715

REACTIONS (3)
  - Intestinal obstruction [Recovered/Resolved]
  - Multivisceral transplantation [Recovered/Resolved]
  - Wound evisceration [Recovered/Resolved]

NARRATIVE: CASE EVENT DATE: 20210514
